FAERS Safety Report 15276693 (Version 2)
Quarter: 2018Q3

REPORT INFORMATION
  Report Type: Spontaneous
  Country: US (occurrence: US)
  Receive Date: 20180814
  Receipt Date: 20180925
  Transmission Date: 20181010
  Serious: No
  Sender: FDA-Public Use
  Company Number: US-ASTRAZENECA-2018SE92322

PATIENT
  Sex: Male
  Weight: 86.2 kg

DRUGS (2)
  1. SYMBICORT [Suspect]
     Active Substance: BUDESONIDE\FORMOTEROL FUMARATE DIHYDRATE
     Indication: CHRONIC OBSTRUCTIVE PULMONARY DISEASE
     Dosage: 160/4.5 MCG, 2 PUFFS ONCE A DAY
     Route: 055
     Dates: start: 201209
  2. SPIRIVA [Concomitant]
     Active Substance: TIOTROPIUM BROMIDE MONOHYDRATE
     Indication: CHRONIC OBSTRUCTIVE PULMONARY DISEASE
     Route: 048

REACTIONS (7)
  - Lung disorder [Recovered/Resolved]
  - Cataract [Not Recovered/Not Resolved]
  - Off label use [Unknown]
  - Underdose [Not Recovered/Not Resolved]
  - Product use issue [Unknown]
  - Device defective [Unknown]
  - Intentional product misuse [Not Recovered/Not Resolved]
